FAERS Safety Report 8138950-5 (Version None)
Quarter: 2012Q1

REPORT INFORMATION
  Report Type: 
  Country: None (occurrence: None)
  Receive Date: 20120215
  Receipt Date: 20120208
  Transmission Date: 20120608
  Serious: Yes (Hospitalization)
  Sender: FDA-Public Use
  Company Number: US-ABBOTT-12P-163-0903453-00

PATIENT
  Sex: Female
  Weight: 79.904 kg

DRUGS (8)
  1. HYDROCHLOROTHIAZIDE [Concomitant]
     Indication: DIURETIC THERAPY
  2. PROMETRIUM [Concomitant]
     Indication: HORMONE REPLACEMENT THERAPY
  3. ENTOCORT EC [Suspect]
     Indication: ABDOMINAL PAIN
     Dates: start: 20110601, end: 20110601
  4. ESTRATEST [Concomitant]
     Indication: HORMONE REPLACEMENT THERAPY
  5. HUMIRA [Suspect]
     Indication: CROHN'S DISEASE
     Route: 058
     Dates: start: 20110501, end: 20120202
  6. ACCUPRIL [Concomitant]
     Indication: HYPERTENSION
  7. LEXAPRO [Concomitant]
     Indication: PRODUCT USED FOR UNKNOWN INDICATION
  8. WELLBUTRIN [Concomitant]
     Indication: PRODUCT USED FOR UNKNOWN INDICATION

REACTIONS (7)
  - VOMITING [None]
  - DIVERTICULUM [None]
  - ABDOMINAL PAIN [None]
  - DIARRHOEA [None]
  - INFLUENZA LIKE ILLNESS [None]
  - ASTHENIA [None]
  - MALAISE [None]
